FAERS Safety Report 8307742-6 (Version None)
Quarter: 2012Q2

REPORT INFORMATION
  Report Type: 
  Country: None (occurrence: None)
  Receive Date: 20120424
  Receipt Date: 20120417
  Transmission Date: 20120825
  Serious: Yes (Hospitalization, Other)
  Sender: FDA-Public Use
  Company Number: US-AMGEN-USASP2012024281

PATIENT
  Age: 79 Year
  Sex: Female

DRUGS (1)
  1. ENBREL [Suspect]
     Indication: RHEUMATOID ARTHRITIS
     Dosage: 50 MG, QWK
     Dates: start: 20000101, end: 20120201

REACTIONS (9)
  - PELVIC PAIN [None]
  - MOBILITY DECREASED [None]
  - HAND DEFORMITY [None]
  - MULTIPLE FRACTURES [None]
  - FOOT DEFORMITY [None]
  - FALL [None]
  - GROIN PAIN [None]
  - RHEUMATOID ARTHRITIS [None]
  - PELVIC FRACTURE [None]
